FAERS Safety Report 11784900 (Version 1)
Quarter: 2015Q4

REPORT INFORMATION
  Report Type: Spontaneous
  Country: ES (occurrence: ES)
  Receive Date: 20151130
  Receipt Date: 20151130
  Transmission Date: 20160305
  Serious: Yes (Death, Other)
  Sender: FDA-Public Use
  Company Number: ES-009507513-2012SP009580

PATIENT
  Age: 45 Year
  Sex: Female

DRUGS (5)
  1. ASPIRIN. [Concomitant]
     Active Substance: ASPIRIN
     Indication: PROPHYLAXIS
     Dosage: UNK UNK, UNKNOWN
     Route: 065
     Dates: start: 201006
  2. HEPARIN [Concomitant]
     Active Substance: HEPARIN SODIUM
  3. INTRON A [Suspect]
     Active Substance: INTERFERON ALFA-2B
     Indication: MALIGNANT MELANOMA
     Dosage: 3 TIMES /WEEK/18MONTHS, 1 DF, TIW
     Route: 065
     Dates: start: 20090625, end: 201008
  4. INTRON A [Suspect]
     Active Substance: INTERFERON ALFA-2B
     Indication: MALIGNANT MELANOMA
     Dosage: 3 TIMES/WEEK/18MONTHS, 1 DF, TIW
     Route: 065
     Dates: start: 20090118, end: 20090526
  5. ACETAMINOPHEN. [Concomitant]
     Active Substance: ACETAMINOPHEN
     Route: 048

REACTIONS (4)
  - Thrombophlebitis [Recovered/Resolved]
  - Acute myocardial infarction [Fatal]
  - Pyrexia [Unknown]
  - Poisoning [Unknown]

NARRATIVE: CASE EVENT DATE: 20101030
